FAERS Safety Report 19846206 (Version 2)
Quarter: 2021Q3

REPORT INFORMATION
  Report Type: Spontaneous
  Country: IN (occurrence: IN)
  Receive Date: 20210917
  Receipt Date: 20210923
  Transmission Date: 20211014
  Serious: Yes (Hospitalization, Other)
  Sender: FDA-Public Use
  Company Number: IN-STRIDES ARCOLAB LIMITED-2021SP027756

PATIENT
  Age: 54 Year
  Sex: Male

DRUGS (9)
  1. PREDNISOLONE. [Suspect]
     Active Substance: PREDNISOLONE
     Dosage: UNK (DOSE DECREASED)
     Route: 048
  2. PREDNISOLONE. [Suspect]
     Active Substance: PREDNISOLONE
     Indication: ULCERATIVE KERATITIS
     Dosage: UNK
     Route: 048
  3. PREDNISOLONE. [Suspect]
     Active Substance: PREDNISOLONE
     Dosage: UNK, EVERY 2 HRS (PREDNISOLONE ACETATE 1%)
     Route: 061
  4. NATAMYCIN [Concomitant]
     Active Substance: NATAMYCIN
     Indication: ANTIBIOTIC THERAPY
     Dosage: UNK PER HOUR
     Route: 061
  5. PREDNISOLONE. [Suspect]
     Active Substance: PREDNISOLONE
     Dosage: UNK (TAPERED) (PREDNISOLONE ACETATE 1%)
     Route: 061
  6. PREDNISOLONE. [Suspect]
     Active Substance: PREDNISOLONE
     Dosage: UNK, EVERY 6 HRS (PREDNISOLONE ACETATE 1%)
     Route: 061
  7. PREDNISOLONE. [Suspect]
     Active Substance: PREDNISOLONE
     Dosage: UNK UNK, QID (PREDNISOLONE ACETATE 1 PERCENT)
     Route: 061
  8. VANCOMYCIN [Concomitant]
     Active Substance: VANCOMYCIN
     Indication: ULCERATIVE KERATITIS
     Dosage: UNK (EVERY HOUR)
     Route: 061
  9. CIPROFLOXACIN. [Concomitant]
     Active Substance: CIPROFLOXACIN
     Indication: ULCERATIVE KERATITIS
     Dosage: UNK
     Route: 061

REACTIONS (6)
  - Corneal perforation [Recovered/Resolved]
  - Anterior chamber inflammation [Recovered/Resolved]
  - Iridocele [Recovered/Resolved]
  - Infective keratitis [Recovered/Resolved]
  - Pythium insidiosum infection [Recovered/Resolved]
  - Condition aggravated [Recovered/Resolved]
